FAERS Safety Report 10531227 (Version 3)
Quarter: 2014Q4

REPORT INFORMATION
  Report Type: Report from Study
  Country: JP (occurrence: JP)
  Receive Date: 20141021
  Receipt Date: 20141111
  Transmission Date: 20150529
  Serious: Yes (Death)
  Sender: FDA-Public Use
  Company Number: JP-SA-2014SA142799

PATIENT
  Age: 71 Year
  Sex: Male

DRUGS (3)
  1. ESTRAMUSTINE [Concomitant]
     Active Substance: ESTRAMUSTINE
     Indication: PROSTATE CANCER
     Dosage: 560 MG/DAY, TWICE DAILY FROM DAYS 1-5, TOTAL 5 COURSES ADMINISTERED
  2. TAXOTERE [Suspect]
     Active Substance: DOCETAXEL
     Indication: PROSTATE CANCER
     Dosage: ON DAY 2, TOTAL 5 COURSES ADMINISTERED, STRENGTH: 80 MG
     Route: 042
  3. HYDROCORTISONE. [Concomitant]
     Active Substance: HYDROCORTISONE
     Indication: PROSTATE CANCER
     Dosage: FROM DAY 1 TO DAY 21, 21 DAYS CYCLE, TOTAL 5 COURSES ADMINISTERED

REACTIONS (2)
  - Interstitial lung disease [Fatal]
  - Cell marker increased [Fatal]

NARRATIVE: CASE EVENT DATE: 20090420
